FAERS Safety Report 19582339 (Version 2)
Quarter: 2021Q3

REPORT INFORMATION
  Report Type: Spontaneous
  Country: US (occurrence: US)
  Receive Date: 20210720
  Receipt Date: 20210827
  Transmission Date: 20211014
  Serious: Yes (Other)
  Sender: FDA-Public Use
  Company Number: US-TEVA-2021-US-1932956

PATIENT
  Age: 76 Year
  Sex: Female

DRUGS (1)
  1. WARFARIN [Suspect]
     Active Substance: WARFARIN
     Dosage: 1 TABLET A DAY OF 4 MG, 1 TABLET EVERY OTHER DRUG 2 MG
     Route: 065

REACTIONS (4)
  - Thrombosis [Unknown]
  - Pain in extremity [Recovering/Resolving]
  - Illness [Unknown]
  - Pigmentation disorder [Recovering/Resolving]

NARRATIVE: CASE EVENT DATE: 2021
